FAERS Safety Report 11836419 (Version 5)
Quarter: 2016Q1

REPORT INFORMATION
  Report Type: Spontaneous
  Country: US (occurrence: US)
  Receive Date: 20151215
  Receipt Date: 20160318
  Transmission Date: 20160525
  Serious: Yes (Death, Hospitalization, Other)
  Sender: FDA-Public Use
  Company Number: US-PFIZER INC-2015436812

PATIENT
  Age: 81 Year
  Sex: Male
  Weight: 100 kg

DRUGS (18)
  1. WARFARIN [Concomitant]
     Active Substance: WARFARIN
     Dosage: (MAX 7.5 A DAY) (M,W,F - 5:00; T,TH,S,S,)
     Dates: start: 20151015
  2. OXYGEN. [Concomitant]
     Active Substance: OXYGEN
     Indication: RESPIRATION ABNORMAL
     Dosage: 6 L, UNK
     Route: 055
  3. OXYGEN. [Concomitant]
     Active Substance: OXYGEN
     Dosage: 5.0-25 MG
  4. OXYGEN. [Concomitant]
     Active Substance: OXYGEN
     Dosage: 4 L ON THE ROAD
  5. CALTRATE [Concomitant]
     Active Substance: CALCIUM CARBONATE
     Dosage: 1X/DAY AM
  6. BUPROPION. [Concomitant]
     Active Substance: BUPROPION
     Dosage: 150 MG, 2X/DAY AM AND PM
  7. FUROSEMIDE. [Concomitant]
     Active Substance: FUROSEMIDE
     Dosage: 40 MG, 1X/DAY
     Route: 048
  8. PROAIR HFA [Concomitant]
     Active Substance: ALBUTEROL SULFATE
     Indication: DYSPNOEA
     Dosage: 2 PUFFS A DAY AS NEEDED
     Route: 055
  9. QVAR [Concomitant]
     Active Substance: BECLOMETHASONE DIPROPIONATE
     Dosage: ONE PUFF, 2X/DAY (IN THE AM AND PM),
     Route: 055
  10. REVATIO [Suspect]
     Active Substance: SILDENAFIL CITRATE
     Indication: CARDIAC DISORDER
     Dosage: 20 MG, 3X/DAY
     Dates: start: 1999
  11. IPRATROPIUM ALBUTEROL [Concomitant]
     Active Substance: ALBUTEROL\IPRATROPIUM
     Dosage: IPRATROPIUM 0.5 MG-ALBUTEROL 2.5 MG/3 ML SOLUTION) INHALATION AT AS NEEDED
     Route: 055
     Dates: start: 2005
  12. OXYGEN. [Concomitant]
     Active Substance: OXYGEN
     Indication: CHRONIC OBSTRUCTIVE PULMONARY DISEASE
     Dosage: 2 L, UNK
     Route: 055
     Dates: start: 2002
  13. DILTIAZEM [Concomitant]
     Active Substance: DILTIAZEM
     Indication: BLOOD PRESSURE ABNORMAL
     Dosage: 30 MG, 2X/DAY
     Dates: start: 2005
  14. IRON [Concomitant]
     Active Substance: IRON
     Indication: MINERAL SUPPLEMENTATION
     Dosage: 90 MG, DAILY
     Dates: start: 20151015
  15. OXYGEN. [Concomitant]
     Active Substance: OXYGEN
     Dosage: 4.5 L AT HOME
     Route: 055
  16. SPIRIVA [Concomitant]
     Active Substance: TIOTROPIUM BROMIDE MONOHYDRATE
     Indication: CHRONIC OBSTRUCTIVE PULMONARY DISEASE
     Dosage: 30 UG, 1X/DAY AM
  17. HYDROCHLOROTHIAZIDE. [Concomitant]
     Active Substance: HYDROCHLOROTHIAZIDE
     Indication: BLOOD PRESSURE ABNORMAL
     Dosage: 25 MG, 1X/DAY (AM)
  18. TAMSULOSIN [Concomitant]
     Active Substance: TAMSULOSIN
     Indication: PROSTATIC DISORDER
     Dosage: 0.4 MG, 2X/DAY
     Dates: start: 20121223

REACTIONS (12)
  - Fall [Unknown]
  - Laceration [Unknown]
  - Product use issue [Unknown]
  - Chronic obstructive pulmonary disease [Fatal]
  - Bronchitis [Unknown]
  - Asthma [Unknown]
  - Cardiac failure [Unknown]
  - Intentional product misuse [Unknown]
  - Sleep apnoea syndrome [Unknown]
  - Oedema [Unknown]
  - Atrial fibrillation [Fatal]
  - Type 2 diabetes mellitus [Unknown]

NARRATIVE: CASE EVENT DATE: 1999
